FAERS Safety Report 15541686 (Version 1)
Quarter: 2018Q4

REPORT INFORMATION
  Report Type: Spontaneous
  Country: US (occurrence: US)
  Receive Date: 20181023
  Receipt Date: 20181023
  Transmission Date: 20190205
  Serious: No
  Sender: FDA-Public Use
  Company Number: US-PURDUE-USA-2018-0143954

PATIENT
  Sex: Female
  Weight: 90.72 kg

DRUGS (7)
  1. FAMOTIDINE. [Concomitant]
     Active Substance: FAMOTIDINE
     Indication: GASTROOESOPHAGEAL REFLUX DISEASE
     Dosage: 20 MG, DAILY
     Route: 048
     Dates: start: 201802
  2. CALCIUM                            /00060701/ [Concomitant]
     Active Substance: CALCIUM
     Indication: BLOOD CALCIUM DECREASED
     Dosage: 500 MG, DAILY
     Route: 065
     Dates: start: 201802
  3. VITAMIN D                          /00107901/ [Concomitant]
     Active Substance: ERGOCALCIFEROL
     Indication: VITAMIN D DECREASED
     Dosage: 2000 IU, DAILY
     Route: 048
     Dates: start: 201711
  4. OXYCODONE HYDROCHLORIDE (SIMILAR TO NDA 22-272) [Suspect]
     Active Substance: OXYCODONE HYDROCHLORIDE
     Dosage: 5 MG, Q4H PRN
     Route: 048
     Dates: start: 201505
  5. LETROZOLE. [Concomitant]
     Active Substance: LETROZOLE
     Indication: CHEMOTHERAPY
     Dosage: 2.5 MG, DAILY
     Route: 048
     Dates: start: 201505
  6. OXYCODONE HYDROCHLORIDE (SIMILAR TO NDA 22-272) [Suspect]
     Active Substance: OXYCODONE HYDROCHLORIDE
     Indication: PAIN
     Dosage: (3 X 5 MG) 15 MG, DAILY
     Route: 048
     Dates: start: 201505
  7. FAMOTIDINE. [Concomitant]
     Active Substance: FAMOTIDINE
     Indication: GASTROINTESTINAL DISORDER

REACTIONS (1)
  - Body height decreased [Unknown]
